FAERS Safety Report 9218626 (Version 1)
Quarter: 2013Q1

REPORT INFORMATION
  Report Type: Spontaneous
  Country: US (occurrence: None)
  Receive Date: 20120827
  Receipt Date: 20120827
  Transmission Date: 20140127
  Serious: No
  Sender: FDA-Public Use
  Company Number: 351182

PATIENT
  Sex: Female

DRUGS (2)
  1. LEVEMIR FLEXPEN (INSULIN DETEMIR) SOLUTION FOR INJECTION, .0024 MOL/L [Suspect]
     Indication: DIABETES MELLITUS
     Dosage: UNKNOWN , SUBCUTANEOUS
     Route: 058
  2. VICTOZA (LIRAGLUTIDE) SOLUTION FOR INJECTION, 6MG/ML [Suspect]
     Indication: DIABETES MELLITUS
     Dosage: UNKNOWN, SUBCUTANEOUS
     Route: 058

REACTIONS (2)
  - Malaise [None]
  - Blood glucose increased [None]
